FAERS Safety Report 14520705 (Version 3)
Quarter: 2018Q1

REPORT INFORMATION
  Report Type: Spontaneous
  Country: US (occurrence: US)
  Receive Date: 20180212
  Receipt Date: 20180328
  Transmission Date: 20180509
  Serious: Yes (Other)
  Sender: FDA-Public Use
  Company Number: US-AMGEN-USASP2018017425

PATIENT
  Age: 51 Year
  Sex: Female
  Weight: 67.5 kg

DRUGS (8)
  1. PARSABIV [Suspect]
     Active Substance: ETELCALCETIDE HYDROCHLORIDE
     Dosage: 5 MG, UNK
     Route: 042
     Dates: start: 20171110
  2. PARSABIV [Suspect]
     Active Substance: ETELCALCETIDE HYDROCHLORIDE
     Dosage: 10 MG, UNK
     Route: 042
     Dates: start: 20171128
  3. PARSABIV [Suspect]
     Active Substance: ETELCALCETIDE HYDROCHLORIDE
     Dosage: 12.5 MG, QWK
     Route: 042
     Dates: start: 20171213, end: 20180102
  4. SENSIPAR [Suspect]
     Active Substance: CINACALCET HYDROCHLORIDE
     Indication: PRODUCT USED FOR UNKNOWN INDICATION
     Dosage: 180 MG, UNK
     Route: 065
  5. PARSABIV [Suspect]
     Active Substance: ETELCALCETIDE HYDROCHLORIDE
     Dosage: 7.5 MG, UNK
     Route: 042
     Dates: start: 20171120
  6. PARSABIV [Suspect]
     Active Substance: ETELCALCETIDE HYDROCHLORIDE
     Indication: PRODUCT USED FOR UNKNOWN INDICATION
     Dosage: 2.5 MG, UNK
     Route: 042
     Dates: start: 20171102
  7. SEVELAMER [Concomitant]
     Active Substance: SEVELAMER
     Dosage: 4.8 MG, TID
     Route: 048
  8. PARICALCITOL. [Concomitant]
     Active Substance: PARICALCITOL
     Dosage: 10 MG, 3 TIMES/WK

REACTIONS (8)
  - Paraesthesia oral [Unknown]
  - Vision blurred [Unknown]
  - Underdose [Unknown]
  - Enzyme level abnormal [Recovered/Resolved]
  - Bone pain [Recovered/Resolved]
  - Pruritus [Unknown]
  - Blood parathyroid hormone increased [Unknown]
  - Paraesthesia [Unknown]

NARRATIVE: CASE EVENT DATE: 2017
